FAERS Safety Report 9538005 (Version 2)
Quarter: 2013Q3

REPORT INFORMATION
  Report Type: Report from Study
  Country: UY (occurrence: UY)
  Receive Date: 20130919
  Receipt Date: 20130928
  Transmission Date: 20140515
  Serious: Yes (Death)
  Sender: FDA-Public Use
  Company Number: UY-ROCHE-1278576

PATIENT
  Sex: Male

DRUGS (1)
  1. XELODA [Suspect]
     Indication: METASTATIC GASTRIC CANCER
     Dosage: 2000 MG AM AND 2000 MG PM
     Route: 048
     Dates: start: 20130731

REACTIONS (1)
  - Death [Fatal]
